FAERS Safety Report 4611523-4 (Version None)
Quarter: 2005Q1

REPORT INFORMATION
  Report Type: 
  Country: None (occurrence: None)
  Receive Date: 20050316
  Receipt Date: 20050316
  Transmission Date: 20050727
  Serious: Yes (Hospitalization, Other)
  Sender: FDA-Public Use
  Company Number: None

PATIENT
  Age: 63 Year
  Sex: Female
  Weight: 74.8435 kg

DRUGS (9)
  1. CELEBREX [Suspect]
     Dosage: 200MG  DAILY
     Dates: start: 20050305
  2. PROTONIX [Concomitant]
  3. AVAPRO [Concomitant]
  4. AMBIEN [Concomitant]
  5. GLYBURIDE [Concomitant]
  6. METFORMIN HCL [Concomitant]
  7. TRICOR [Concomitant]
  8. LIPITOR [Concomitant]
  9. AVANDIA [Concomitant]

REACTIONS (2)
  - DYSPNOEA [None]
  - PRURITUS GENERALISED [None]
